FAERS Safety Report 5697985-2 (Version None)
Quarter: 2008Q2

REPORT INFORMATION
  Report Type: 
  Country: None (occurrence: None)
  Receive Date: 20080404
  Receipt Date: 20080404
  Transmission Date: 20081010
  Serious: Yes (Other)
  Sender: FDA-Public Use
  Company Number: None

PATIENT
  Age: 52 Year
  Sex: Female
  Weight: 65.7716 kg

DRUGS (17)
  1. CITRACAL  250+D [Suspect]
     Indication: VITAMIN SUPPLEMENTATION
     Dosage: 2 DF, QD, ORAL;  5 DF, QD, ORAL
     Route: 048
     Dates: start: 20060301, end: 20080101
  2. CITRACAL  250+D [Suspect]
     Indication: VITAMIN SUPPLEMENTATION
     Dosage: 2 DF, QD, ORAL;  5 DF, QD, ORAL
     Route: 048
     Dates: start: 20080101
  3. ALEVE LIQUID GELS (NAPROXEN SODIUM) [Suspect]
     Dosage: ORAL
     Route: 048
  4. SYNTHROID [Concomitant]
  5. KLOR-CON [Concomitant]
  6. IMITREX [Concomitant]
  7. NATURES BOUNTY CRANBERRY [Concomitant]
  8. NATURE MADE COMPLETE VITAMIN [Concomitant]
  9. NATURE MADE MAGNESIUM [Concomitant]
  10. IRON [Concomitant]
  11. VITAMIN E [Concomitant]
  12. ASCORBIC ACID [Concomitant]
  13. VITAMIN B12 [Concomitant]
  14. VITAMIN B-12 [Concomitant]
  15. SALMON OIL [Concomitant]
  16. MAREZINE [Concomitant]
  17. SIMETHICONE [Concomitant]

REACTIONS (4)
  - CHEST DISCOMFORT [None]
  - CONTRAINDICATION TO MEDICAL TREATMENT [None]
  - DYSPNOEA [None]
  - THROAT TIGHTNESS [None]
